FAERS Safety Report 19207920 (Version 1)
Quarter: 2021Q2

REPORT INFORMATION
  Report Type: Spontaneous
  Country: US (occurrence: US)
  Receive Date: 20210503
  Receipt Date: 20210503
  Transmission Date: 20210717
  Serious: No
  Sender: FDA-Public Use
  Company Number: US-ABBVIE-20K-163-3544692-00

PATIENT
  Age: 67 Year
  Sex: Female
  Weight: 44.6 kg

DRUGS (1)
  1. CREON [Suspect]
     Active Substance: PANCRELIPASE AMYLASE\PANCRELIPASE LIPASE\PANCRELIPASE PROTEASE
     Indication: PANCREATIC CARCINOMA
     Dosage: 2 CAPSULE 3X A DAY WITH MEALS AND 1 CAPSULE WITH SNACK
     Route: 048
     Dates: start: 20200708

REACTIONS (3)
  - Diarrhoea [Recovering/Resolving]
  - Feeling abnormal [Not Recovered/Not Resolved]
  - Unevaluable event [Not Recovered/Not Resolved]

NARRATIVE: CASE EVENT DATE: 20200823
